FAERS Safety Report 5664193-0 (Version None)
Quarter: 2008Q1

REPORT INFORMATION
  Report Type: 
  Country: None (occurrence: None)
  Receive Date: 20080312
  Receipt Date: 20080228
  Transmission Date: 20080703
  Serious: Yes (Hospitalization)
  Sender: FDA-Public Use
  Company Number: 232030J08USA

PATIENT
  Age: 52 Year
  Sex: Female

DRUGS (4)
  1. REBIF [Suspect]
     Indication: MULTIPLE SCLEROSIS
     Dosage: 44 MCG, 3 IN 1 WEEKS, SUBCUTANEOUS
     Route: 058
     Dates: start: 20071025
  2. MACRODANTIN [Concomitant]
  3. DILTIAZEM-XR        (DILITIAZEM) [Concomitant]
  4. LEXAPRO [Concomitant]

REACTIONS (3)
  - INJECTION SITE ERYTHEMA [None]
  - NEPHRITIS [None]
  - URINARY TRACT INFECTION [None]
